FAERS Safety Report 7352055 (Version 2)
Quarter: 2018Q4

REPORT INFORMATION
  Report Type: Spontaneous
  Country: US (occurrence: US)
  Receive Date: 20100412
  Receipt Date: 20181212
  Transmission Date: 20190205
  Serious: Yes (Death)
  Sender: FDA-Public Use
  Company Number: GXKR2010US03865

PATIENT
  Age: 61 Year
  Sex: Male

DRUGS (5)
  1. PACLITAXEL. [Suspect]
     Active Substance: PACLITAXEL
     Indication: BLADDER CANCER
     Dosage: 200 MG/M2, UNK (DAY 1)
     Route: 065
  2. TRASTUZUMAB. [Suspect]
     Active Substance: TRASTUZUMAB
     Indication: BLADDER CANCER
     Dosage: 4 MG/KG, UNK
     Route: 065
  3. CARBOPLATIN. [Suspect]
     Active Substance: CARBOPLATIN
     Indication: BLADDER CANCER
     Dosage: AUC 5 ON DAY 1
     Route: 065
  4. GEMCITABINE [Suspect]
     Active Substance: GEMCITABINE\GEMCITABINE HYDROCHLORIDE
     Indication: BLADDER CANCER
     Dosage: 800 MG/M2, UNK (ON DAY 1 AND 8)
     Route: 065
  5. TRASTUZUMAB. [Suspect]
     Active Substance: TRASTUZUMAB
     Dosage: 2 MG/KG, UNK (ON DAY 1, 8 AND 15)
     Route: 065

REACTIONS (6)
  - Metastases to meninges [Fatal]
  - Drug ineffective [Unknown]
  - Loss of proprioception [Fatal]
  - Peripheral sensory neuropathy [Fatal]
  - Metastases to central nervous system [Fatal]
  - Paraesthesia [Fatal]
